FAERS Safety Report 10652635 (Version 1)
Quarter: 2014Q4

REPORT INFORMATION
  Report Type: Spontaneous
  Country: US (occurrence: US)
  Receive Date: 20141215
  Receipt Date: 20141215
  Transmission Date: 20150529
  Serious: Yes (Hospitalization, Other)
  Sender: FDA-Public Use
  Company Number: US-ACTAVIS-2014-26590

PATIENT
  Age: 71 Year
  Sex: Male

DRUGS (5)
  1. TICAGRELOR [Interacting]
     Active Substance: TICAGRELOR
     Dosage: 180 MG, SINGLE
     Route: 065
  2. PHENYTOIN (AMALLC) [Suspect]
     Active Substance: PHENYTOIN
     Indication: SEIZURE
     Dosage: UNK
     Route: 065
  3. TICAGRELOR [Interacting]
     Active Substance: TICAGRELOR
     Indication: ANTIPLATELET THERAPY
     Dosage: 90 MG, BID
     Route: 065
  4. ASPIRIN. [Concomitant]
     Active Substance: ASPIRIN
     Indication: ANTIPLATELET THERAPY
     Dosage: 81 MG, DAILY
     Route: 065
  5. EPTIFIBATIDE [Interacting]
     Active Substance: EPTIFIBATIDE
     Indication: ANTIPLATELET THERAPY
     Dosage: 2?G/KG/MIN
     Route: 065

REACTIONS (2)
  - Drug interaction [Recovered/Resolved]
  - Platelet aggregation increased [Recovered/Resolved]
